FAERS Safety Report 4738136-8 (Version None)
Quarter: 2005Q3

REPORT INFORMATION
  Report Type: 
  Country: None (occurrence: None)
  Receive Date: 20050809
  Receipt Date: 20040923
  Transmission Date: 20060218
  Serious: Yes (Hospitalization)
  Sender: FDA-Public Use
  Company Number: DE-MERCK-0409DEU00158

PATIENT
  Age: 90 Year
  Sex: Female

DRUGS (8)
  1. VIOXX [Suspect]
     Indication: OSTEOARTHRITIS
     Route: 048
     Dates: start: 20040401, end: 20040515
  2. MOXIFLOXACIN HYDROCHLORIDE [Concomitant]
     Indication: PNEUMONIA ASPIRATION
     Route: 048
     Dates: start: 20040519, end: 20040529
  3. ESCITALOPRAM OXALATE [Suspect]
     Indication: ANXIETY DISORDER
     Route: 048
     Dates: start: 20040401, end: 20040520
  4. ENOXAPARIN SODIUM [Suspect]
     Indication: THROMBOSIS PROPHYLAXIS
     Route: 058
     Dates: start: 20040401, end: 20040520
  5. HYDROCHLOROTHIAZIDE [Concomitant]
     Indication: HYPERTENSION
     Route: 048
     Dates: end: 20040520
  6. CLOPIDOGREL BISULFATE [Suspect]
     Indication: PROPHYLAXIS
     Route: 048
     Dates: start: 20040401, end: 20040520
  7. PANTOPRAZOLE SODIUM [Concomitant]
     Indication: PROPHYLAXIS AGAINST GASTROINTESTINAL ULCER
     Route: 048
     Dates: start: 20040401
  8. SIMVASTATIN [Concomitant]
     Indication: HYPERLIPIDAEMIA
     Route: 048
     Dates: start: 20040401, end: 20040520

REACTIONS (2)
  - DRUG INTERACTION [None]
  - DUODENAL ULCER HAEMORRHAGE [None]
